FAERS Safety Report 10962577 (Version 1)
Quarter: 2015Q1

REPORT INFORMATION
  Report Type: Spontaneous
  Country: US (occurrence: US)
  Receive Date: 20150327
  Receipt Date: 20150327
  Transmission Date: 20150721
  Serious: Yes (Other)
  Sender: FDA-Public Use
  Company Number: US-MYLANLABS-2015M1009892

PATIENT

DRUGS (3)
  1. DEXAMETHASONE. [Suspect]
     Active Substance: DEXAMETHASONE
     Indication: GLIOMA
     Dosage: 10MG/M2
     Route: 065
  2. DEXAMETHASONE. [Interacting]
     Active Substance: DEXAMETHASONE
     Indication: OFF LABEL USE
  3. VANDETANIB. [Interacting]
     Active Substance: VANDETANIB
     Indication: GLIOMA
     Dosage: 50MG/M2/D
     Route: 065

REACTIONS (3)
  - Epiphyses premature fusion [Not Recovered/Not Resolved]
  - Osteonecrosis [Recovering/Resolving]
  - Drug interaction [Recovering/Resolving]
